FAERS Safety Report 5664552-6 (Version None)
Quarter: 2008Q1

REPORT INFORMATION
  Report Type: 
  Country: None (occurrence: None)
  Receive Date: 20080314
  Receipt Date: 20080305
  Transmission Date: 20080703
  Serious: Yes (Other)
  Sender: FDA-Public Use
  Company Number: US-JNJFOC-20080301460

PATIENT
  Age: 71 Year
  Sex: Female
  Weight: 49.44 kg

DRUGS (16)
  1. ALTERNAGEL [Suspect]
     Indication: HYPERPHOSPHATAEMIA
     Route: 048
  2. CLONIDINE [Concomitant]
  3. AVAPRO [Concomitant]
  4. FOLIC ACID [Concomitant]
  5. MEDROL [Concomitant]
  6. SYNTHROID [Concomitant]
  7. ZOLOFT [Concomitant]
  8. RENA-VIGHT [Concomitant]
  9. IMDUR [Concomitant]
  10. NORVASC [Concomitant]
  11. TEMAZEPAM [Concomitant]
  12. PRILOSEC OTC [Concomitant]
  13. LOMOTIL [Concomitant]
  14. LABETALOL HCL [Concomitant]
  15. ACETAMINOPHEN AND HYDROCODONE BITARTRATE [Concomitant]
  16. GABAPENTIN [Concomitant]

REACTIONS (1)
  - AGEUSIA [None]
